FAERS Safety Report 20620628 (Version 1)
Quarter: 2022Q1

REPORT INFORMATION
  Report Type: Spontaneous
  Country: IT (occurrence: IT)
  Receive Date: 20220322
  Receipt Date: 20220322
  Transmission Date: 20220424
  Serious: Yes (Other)
  Sender: FDA-Public Use
  Company Number: IT-MYLANLABS-2022M1020684

PATIENT
  Age: 59 Year
  Sex: Female

DRUGS (3)
  1. PREDNISONE [Suspect]
     Active Substance: PREDNISONE
     Indication: Acute disseminated encephalomyelitis
     Dosage: 75 MILLIGRAM, QD, THAT WAS SUBSEQUENTLY TAPERED
     Route: 048
     Dates: start: 2020, end: 2020
  2. METHYLPREDNISOLONE [Suspect]
     Active Substance: METHYLPREDNISOLONE
     Indication: Acute disseminated encephalomyelitis
     Dosage: 1 GRAM, QD
     Route: 042
     Dates: start: 2020
  3. IMMUNE GLOBULIN NOS [Concomitant]
     Active Substance: IMMUNE GLOBULIN NOS
     Indication: Acute disseminated encephalomyelitis
     Dosage: 2 G/KG IN 5 DAYS
     Route: 042

REACTIONS (1)
  - Osteonecrosis [Unknown]

NARRATIVE: CASE EVENT DATE: 20200101
